FAERS Safety Report 20280503 (Version 1)
Quarter: 2022Q1

REPORT INFORMATION
  Report Type: Spontaneous
  Country: CN (occurrence: CN)
  Receive Date: 20220103
  Receipt Date: 20220103
  Transmission Date: 20220423
  Serious: Yes (Other)
  Sender: FDA-Public Use
  Company Number: CN-MEDICUREINC-2021CNLIT00065

PATIENT

DRUGS (1)
  1. AGGRASTAT [Suspect]
     Active Substance: TIROFIBAN HYDROCHLORIDE
     Indication: Antiplatelet therapy
     Route: 022

REACTIONS (1)
  - Cardiac failure acute [Unknown]
